FAERS Safety Report 23085017 (Version 3)
Quarter: 2023Q4

REPORT INFORMATION
  Report Type: Report from Study
  Country: US (occurrence: US)
  Receive Date: 20231019
  Receipt Date: 20231103
  Transmission Date: 20240110
  Serious: Yes (Hospitalization, Other)
  Sender: FDA-Public Use
  Company Number: US-BAYER-2023A139316

PATIENT
  Age: 59 Year
  Sex: Male

DRUGS (3)
  1. STIVARGA [Suspect]
     Active Substance: REGORAFENIB
     Indication: Cholangiocarcinoma
     Dosage: 80 MG, QD
  2. STIVARGA [Suspect]
     Active Substance: REGORAFENIB
     Indication: Cholangiocarcinoma
     Dosage: 120 MG, QD
  3. STIVARGA [Suspect]
     Active Substance: REGORAFENIB
     Indication: Cholangiocarcinoma
     Dosage: 160 MG, QD (EVERY 21 DAYS THEN 7 DAYS OFF)

REACTIONS (6)
  - Dyspnoea [Recovered/Resolved]
  - Neuropathy peripheral [Not Recovered/Not Resolved]
  - Joint swelling [Recovered/Resolved]
  - Intra-abdominal fluid collection [Unknown]
  - Off label use [None]
  - Fatigue [Not Recovered/Not Resolved]
